FAERS Safety Report 5866706-2 (Version None)
Quarter: 2008Q3

REPORT INFORMATION
  Report Type: 
  Country: None (occurrence: None)
  Receive Date: 20080828
  Receipt Date: 20080828
  Transmission Date: 20090109
  Serious: Yes (Death)
  Sender: FDA-Public Use
  Company Number: None

PATIENT
  Age: 37 Year
  Sex: Female
  Weight: 48 kg

DRUGS (5)
  1. COVIRO LS 30 (LAMIVUDINE/STA  DINE) [Suspect]
     Indication: HIV INFECTION
     Dosage: 300MG/60MG BID
     Dates: start: 20070716, end: 20080319
  2. EFAVIRENZ [Suspect]
     Indication: HIV INFECTION
     Dosage: 600MG  ONCE A DAY
     Dates: start: 20070716, end: 20080708
  3. ZIDOVUDINE [Suspect]
     Indication: HIV INFECTION
     Dosage: 300MG  TWICE    DAY
     Dates: start: 20080319, end: 20080602
  4. COTRIMOXAZOLE [Concomitant]
  5. CLARYTHROMYCINE [Concomitant]

REACTIONS (5)
  - ANAEMIA [None]
  - ASTHENIA [None]
  - NEUROPATHY PERIPHERAL [None]
  - VOMITING [None]
  - WEIGHT DECREASED [None]
